FAERS Safety Report 14244396 (Version 4)
Quarter: 2018Q1

REPORT INFORMATION
  Report Type: Spontaneous
  Country: HK (occurrence: HK)
  Receive Date: 20171201
  Receipt Date: 20180108
  Transmission Date: 20180508
  Serious: Yes (Life-Threatening, Hospitalization, Other)
  Sender: FDA-Public Use
  Company Number: HK-BAYER-2017-231187

PATIENT
  Age: 53 Year
  Sex: Female

DRUGS (1)
  1. ULTRAVIST [Suspect]
     Active Substance: IOPROMIDE
     Indication: COMPUTERISED TOMOGRAM THORAX
     Dosage: 70 ML, ONCE (2ML/SECOND)
     Route: 042
     Dates: start: 20171128, end: 20171128

REACTIONS (7)
  - Loss of consciousness [None]
  - Dyspnoea [None]
  - Resuscitation [None]
  - Blood pressure decreased [None]
  - Tachycardia [None]
  - Laryngeal oedema [None]
  - Anaphylactic shock [None]

NARRATIVE: CASE EVENT DATE: 2017
